FAERS Safety Report 8683302 (Version 3)
Quarter: 2012Q4

REPORT INFORMATION
  Report Type: 
  Country: US (occurrence: US)
  Receive Date: 20120726
  Receipt Date: 20121010
  Transmission Date: 20130627
  Serious: Yes (Other)
  Sender: FDA-Public Use
  Company Number: US-PFIZER INC-2012179652

PATIENT
  Age: 58 Year
  Sex: Female
  Weight: 81.63 kg

DRUGS (10)
  1. PRISTIQ [Suspect]
     Indication: DEPRESSION
     Dosage: 100 mg,daily
     Dates: start: 201208
  2. VENLAFAXINE HYDROCHLORIDE [Suspect]
     Indication: DEPRESSION
     Dosage: 400 mg, daily
     Dates: end: 201207
  3. ABILIFY [Suspect]
     Indication: DEPRESSION
     Dosage: 5 mg, daily
     Dates: end: 201207
  4. METFORMIN [Concomitant]
     Indication: DIABETES MELLITUS
     Dosage: 500 mg, daily
  5. LEVOTHYROXINE [Concomitant]
     Indication: HYPOTHYROIDISM
     Dosage: 150 ug, daily
  6. LISINOPRIL [Concomitant]
     Indication: HYPERTENSION
     Dosage: 10 mg, daily
  7. PHENERGAN [Concomitant]
     Indication: NAUSEA
     Dosage: UNK
  8. BUTALBITAL [Concomitant]
     Indication: MIGRAINE
     Dosage: UNK, as needed
  9. ZANAFLEX [Concomitant]
     Indication: FIBROMYALGIA
     Dosage: 8 mg, daily
  10. HYDROCHLOROTHIAZIDE [Concomitant]
     Indication: HYPERTENSION
     Dosage: 25 mg, daily

REACTIONS (2)
  - Depression [Not Recovered/Not Resolved]
  - Expired drug administered [Unknown]
